FAERS Safety Report 4677150-8 (Version None)
Quarter: 2005Q2

REPORT INFORMATION
  Report Type: 
  Country: None (occurrence: None)
  Receive Date: 20050525
  Receipt Date: 20050525
  Transmission Date: 20051028
  Serious: No
  Sender: FDA-Public Use
  Company Number: None

PATIENT
  Sex: Female
  Weight: 95 kg

DRUGS (2)
  1. DOXORUBICIN HCL [Suspect]
     Dosage: 60 MG/M2
     Dates: start: 20050314
  2. CYCLOPHOSPHAMIDE [Suspect]
     Dosage: 600 MG/M2 X 6 Q 14 DAYS IV
     Route: 042

REACTIONS (2)
  - HAEMOGLOBIN DECREASED [None]
  - NAUSEA [None]
